FAERS Safety Report 6983523-0 (Version None)
Quarter: 2010Q3

REPORT INFORMATION
  Report Type: 
  Country: None (occurrence: None)
  Receive Date: 20100914
  Receipt Date: 20080714
  Transmission Date: 20110219
  Serious: No
  Sender: FDA-Public Use
  Company Number: US-WYE-H05088508

PATIENT
  Age: 17 Year
  Sex: Female
  Weight: 65.83 kg

DRUGS (2)
  1. ADVIL LIQUI-GELS [Suspect]
     Indication: HEADACHE
     Dosage: 4 TABLETS 5 DAYS EACH MONTH
     Route: 048
     Dates: start: 19990101, end: 20080601
  2. ADVIL LIQUI-GELS [Suspect]
     Indication: DYSMENORRHOEA
     Route: 048
     Dates: start: 20080714, end: 20080714

REACTIONS (2)
  - INAPPROPRIATE SCHEDULE OF DRUG ADMINISTRATION [None]
  - URTICARIA [None]
